FAERS Safety Report 9132559 (Version 3)
Quarter: 2013Q4

REPORT INFORMATION
  Report Type: Spontaneous
  Country: JP (occurrence: JP)
  Receive Date: 20130301
  Receipt Date: 20131010
  Transmission Date: 20140711
  Serious: Yes (Life-Threatening, Hospitalization)
  Sender: FDA-Public Use
  Company Number: JP-ACTELION-A-CH2013-80004

PATIENT
  Age: 80 Year
  Sex: Female
  Weight: 62.7 kg

DRUGS (15)
  1. TRACLEER [Suspect]
     Indication: PULMONARY ARTERIAL HYPERTENSION
     Dosage: 62.5 MG, BID
     Route: 048
     Dates: start: 20130204, end: 20130215
  2. TRACLEER [Suspect]
     Dosage: 62.5 MG, BID
     Route: 048
     Dates: start: 20130417, end: 20130422
  3. ERYTHROMYCIN [Concomitant]
  4. ASPIRIN [Concomitant]
  5. TADALAFIL [Concomitant]
  6. FUROSEMIDE [Concomitant]
  7. NIFEDIPINE [Concomitant]
  8. VALSARTAN [Concomitant]
  9. KALLIDINOGENASE [Concomitant]
  10. MECOBALAMIN [Concomitant]
  11. ATORVASTATIN CALCIUM [Concomitant]
  12. ALFACALCIDOL [Concomitant]
  13. MAGNESIUM OXIDE [Concomitant]
  14. SENNA LEAF [Concomitant]
  15. ZOPICLONE [Concomitant]

REACTIONS (2)
  - Cardiac failure congestive [Recovered/Resolved]
  - Weight increased [Recovering/Resolving]
